FAERS Safety Report 5939765-6 (Version None)
Quarter: 2008Q4

REPORT INFORMATION
  Report Type: 
  Country: None (occurrence: None)
  Receive Date: 20081031
  Receipt Date: 20081031
  Transmission Date: 20090506
  Serious: No
  Sender: FDA-Public Use
  Company Number: None

PATIENT
  Age: 28 Year
  Sex: Male
  Weight: 86.1834 kg

DRUGS (1)
  1. HALOPERIDOL [Suspect]
     Dosage: 200 MG Q4W IM
     Route: 030

REACTIONS (2)
  - DROOLING [None]
  - EXTRAPYRAMIDAL DISORDER [None]
